FAERS Safety Report 8503878-5 (Version None)
Quarter: 2012Q3

REPORT INFORMATION
  Report Type: 
  Country: None (occurrence: None)
  Receive Date: 20120702
  Receipt Date: 20120620
  Transmission Date: 20120928
  Serious: Yes (Life-Threatening, Hospitalization)
  Sender: FDA-Public Use
  Company Number: MPS1-1000691

PATIENT
  Age: 5 Year
  Sex: Male
  Weight: 20.6 kg

DRUGS (13)
  1. CORTICOSTEROID NOS (CORTICOSTEROID NOS) [Concomitant]
  2. PURAN T4 (LEVOTHYROXINE SODIUM) [Concomitant]
  3. ALDURAZYME [Suspect]
     Indication: MUCOPOLYSACCHARIDOSIS I
     Dosage: 0.81 MG/KG, QW, INTRAVENOUS
     Route: 042
     Dates: start: 20090201
  4. ACETAMINOPHEN [Concomitant]
  5. BRONCHODILATORS NOS [Concomitant]
  6. SPIRONOLACTONE [Concomitant]
  7. FUROSEMIDE (FUROSEMIDE) [Concomitant]
  8. MOTILIUM [Concomitant]
  9. HYDROXYZINE [Concomitant]
  10. PREDNISONE TAB [Concomitant]
  11. SINGULAIR [Concomitant]
  12. SERETIDE (FLUTICASONE PROPIONATE) [Concomitant]
  13. AEROLIN (SALBUTAMOL SULFATE) [Concomitant]

REACTIONS (6)
  - PALLOR [None]
  - INCREASED BRONCHIAL SECRETION [None]
  - CYANOSIS [None]
  - HYPERHIDROSIS [None]
  - DYSPNOEA [None]
  - ASTHMA [None]
